FAERS Safety Report 20850074 (Version 1)
Quarter: 2022Q2

REPORT INFORMATION
  Report Type: Spontaneous
  Country: AU (occurrence: AU)
  Receive Date: 20220519
  Receipt Date: 20220519
  Transmission Date: 20220721
  Serious: Yes (Hospitalization, Disabling, Other)
  Sender: FDA-Public Use
  Company Number: AU-009507513-2204AUS007998

PATIENT
  Age: 71 Year
  Sex: Male
  Weight: 76.8 kg

DRUGS (6)
  1. KEYTRUDA [Suspect]
     Active Substance: PEMBROLIZUMAB
     Indication: Non-small cell lung cancer metastatic
     Dosage: UNK, Q3W
     Route: 042
     Dates: start: 202012, end: 20220118
  2. KEYTRUDA [Suspect]
     Active Substance: PEMBROLIZUMAB
     Indication: Lung adenocarcinoma
  3. ESOMEPRAZOLE [Concomitant]
     Active Substance: ESOMEPRAZOLE
     Indication: Gastrooesophageal reflux disease
     Dosage: 20 MILLIGRAM, QD
     Route: 048
  4. RIVAROXABAN [Concomitant]
     Active Substance: RIVAROXABAN
     Indication: Pulmonary embolism
     Dosage: 20 MILLIGRAM, QD
     Route: 048
  5. EZETIMIBE [Concomitant]
     Active Substance: EZETIMIBE
     Indication: Blood cholesterol increased
     Dosage: 10 MILLIGRAM, QD
     Route: 048
  6. LISINOPRIL [Concomitant]
     Active Substance: LISINOPRIL
     Indication: Hypertension
     Dosage: 5 MILLIGRAM, QD
     Route: 048

REACTIONS (13)
  - Tracheostomy [Unknown]
  - Cerebral small vessel ischaemic disease [Unknown]
  - Encephalopathy [Unknown]
  - Gastrointestinal tube insertion [Unknown]
  - Atrial fibrillation [Unknown]
  - Cutaneous vasculitis [Unknown]
  - Pneumonia [Unknown]
  - Immune-mediated encephalitis [Recovering/Resolving]
  - Immune-mediated pancreatitis [Recovered/Resolved]
  - Immune-mediated enterocolitis [Recovered/Resolved]
  - Inflammation [Unknown]
  - Pyrexia [Not Recovered/Not Resolved]
  - Pneumonitis [Unknown]

NARRATIVE: CASE EVENT DATE: 20220101
